FAERS Safety Report 7005679-6 (Version None)
Quarter: 2010Q3

REPORT INFORMATION
  Report Type: 
  Country: None (occurrence: None)
  Receive Date: 20100921
  Receipt Date: 20100910
  Transmission Date: 20110219
  Serious: Yes (Other)
  Sender: FDA-Public Use
  Company Number: B0675319A

PATIENT
  Age: 56 Year
  Sex: Male

DRUGS (3)
  1. AVODART [Suspect]
     Indication: PRODUCT USED FOR UNKNOWN INDICATION
     Route: 065
  2. TENORMIN [Concomitant]
     Dosage: 1TAB PER DAY
     Route: 065
  3. OMNIC [Concomitant]
     Route: 065

REACTIONS (4)
  - ASTHMA [None]
  - COUGH [None]
  - EXTRASYSTOLES [None]
  - GASTROOESOPHAGEAL REFLUX DISEASE [None]
